FAERS Safety Report 6668818-2 (Version None)
Quarter: 2010Q2

REPORT INFORMATION
  Report Type: 
  Country: None (occurrence: None)
  Receive Date: 20100401
  Receipt Date: 20100325
  Transmission Date: 20101027
  Serious: Yes (Other)
  Sender: FDA-Public Use
  Company Number: 2010SP018940

PATIENT
  Age: 56 Year
  Sex: Male

DRUGS (13)
  1. TEMOZOLOMIDE [Suspect]
     Indication: METASTATIC MALIGNANT MELANOMA
  2. TEMOZOLOMIDE [Suspect]
     Indication: METASTATIC MALIGNANT MELANOMA
  3. OXYCODONE HCL [Concomitant]
  4. ATORVASTATIN CALCIUM [Concomitant]
  5. LERCANIDIPINE HYDROCHLORIDE [Concomitant]
  6. TELMISARTAN [Concomitant]
  7. METFORMIN HCL [Concomitant]
  8. LATANOPROST [Concomitant]
  9. PARACETAMOL [Concomitant]
  10. GRANISETRON [Concomitant]
  11. TEMAZEPAM [Concomitant]
  12. MOVICOL [Concomitant]
  13. DEXAMETHASONE [Concomitant]

REACTIONS (1)
  - BLOOD GLUCOSE INCREASED [None]
